FAERS Safety Report 4566890-7 (Version None)
Quarter: 2005Q1

REPORT INFORMATION
  Report Type: 
  Country: None (occurrence: None)
  Receive Date: 20050201
  Receipt Date: 20030224
  Transmission Date: 20050727
  Serious: Yes (Other)
  Sender: FDA-Public Use
  Company Number: US-BRISTOL-MYERS SQUIBB COMPANY-12195673

PATIENT
  Age: 47 Year
  Sex: Female

DRUGS (22)
  1. STADOL [Suspect]
     Indication: HEADACHE
     Route: 045
     Dates: start: 19980616
  2. SOMA [Concomitant]
  3. XANAX [Concomitant]
  4. ZOLOFT [Concomitant]
  5. DEPAKOTE [Concomitant]
  6. LITHIUM [Concomitant]
  7. DARVOCET-N 100 [Concomitant]
  8. ULTRAM [Concomitant]
  9. PAMELOR [Concomitant]
  10. PERCOCET [Concomitant]
  11. HYDROCODONE + ACETAMINOPHEN [Concomitant]
  12. VIOXX [Concomitant]
  13. CARISOPRODOL [Concomitant]
  14. NUBAIN [Concomitant]
  15. PHENERGAN [Concomitant]
  16. MEPERGAN FORTIS [Concomitant]
  17. LORTAB [Concomitant]
  18. DEMEROL [Concomitant]
  19. ESTRATEST [Concomitant]
  20. IMITREX [Concomitant]
  21. PREMARIN [Concomitant]
  22. METOCLOPRAMIDE [Concomitant]

REACTIONS (1)
  - DEPENDENCE [None]
